FAERS Safety Report 10055201 (Version 2)
Quarter: 2014Q2

REPORT INFORMATION
  Report Type: Spontaneous
  Country: GB (occurrence: GB)
  Receive Date: 20140403
  Receipt Date: 20140411
  Transmission Date: 20141212
  Serious: Yes (Other)
  Sender: FDA-Public Use
  Company Number: GB-RANBAXY-2014RR-79877

PATIENT
  Age: 27 Year
  Sex: Male

DRUGS (1)
  1. PARACETAMOL [Suspect]
     Indication: PRODUCT USED FOR UNKNOWN INDICATION
     Dosage: 8 G, UNK
     Route: 048

REACTIONS (4)
  - Liver injury [Unknown]
  - Hepatic encephalopathy [Unknown]
  - Renal failure acute [Unknown]
  - Overdose [Unknown]
